FAERS Safety Report 7031003-9 (Version None)
Quarter: 2010Q4

REPORT INFORMATION
  Report Type: 
  Country: None (occurrence: None)
  Receive Date: 20101006
  Receipt Date: 20100624
  Transmission Date: 20110411
  Serious: Yes (Other)
  Sender: FDA-Public Use
  Company Number: US-BRISTOL-MYERS SQUIBB COMPANY-15165244

PATIENT
  Sex: Female

DRUGS (1)
  1. KENALOG-40 [Suspect]
     Dosage: INJ TAKEN 6 MONTHS AGO

REACTIONS (5)
  - ANXIETY [None]
  - ATROPHY [None]
  - DEPRESSION [None]
  - PURPURA [None]
  - WEIGHT DECREASED [None]
